FAERS Safety Report 18489360 (Version 1)
Quarter: 2020Q4

REPORT INFORMATION
  Report Type: Spontaneous
  Country: NP (occurrence: NP)
  Receive Date: 20201111
  Receipt Date: 20201111
  Transmission Date: 20210114
  Serious: Yes (Hospitalization, Other)
  Sender: FDA-Public Use
  Company Number: NP-LUPIN PHARMACEUTICALS INC.-2020-08551

PATIENT
  Age: 29 Year
  Sex: Female

DRUGS (4)
  1. LEVOTHYROXINE SODIUM TABLETS [Interacting]
     Active Substance: LEVOTHYROXINE SODIUM
     Dosage: 100 DOSAGE FORM (100 DF 2.5MG (OVERDOSE))
     Route: 048
  2. LEVOTHYROXINE SODIUM TABLETS [Suspect]
     Active Substance: LEVOTHYROXINE SODIUM
     Indication: HYPOTHYROIDISM
     Dosage: 50 MICROGRAM
     Route: 048
  3. PROPRANOLOL [Interacting]
     Active Substance: PROPRANOLOL HYDROCHLORIDE
     Indication: ADJUSTMENT DISORDER
     Dosage: 20 MILLIGRAM
     Route: 065
  4. SERTRALINE [Interacting]
     Active Substance: SERTRALINE HYDROCHLORIDE
     Indication: ADJUSTMENT DISORDER
     Dosage: 50 MILLIGRAM
     Route: 065

REACTIONS (7)
  - Drug interaction [Unknown]
  - Paraesthesia [Unknown]
  - Loss of consciousness [Recovered/Resolved]
  - Thyroxine free increased [Recovering/Resolving]
  - Confusional state [Unknown]
  - Headache [Unknown]
  - Intentional overdose [Unknown]
